FAERS Safety Report 9216546 (Version 1)
Quarter: 2013Q2

REPORT INFORMATION
  Report Type: Spontaneous
  Country: US (occurrence: US)
  Receive Date: 20130408
  Receipt Date: 20130408
  Transmission Date: 20140414
  Serious: No
  Sender: FDA-Public Use
  Company Number: US-B.I. PHARMACEUTICALS,INC./RIDGEFIELD-2013-BI-08200BP

PATIENT
  Age: 77 Year
  Sex: Male
  Weight: 99 kg

DRUGS (1)
  1. SPIRIVA [Suspect]
     Indication: PROPHYLAXIS
     Dosage: 18 MCG
     Route: 055
     Dates: start: 201301, end: 201303

REACTIONS (2)
  - Constipation [Not Recovered/Not Resolved]
  - Hypogeusia [Not Recovered/Not Resolved]
